FAERS Safety Report 11270890 (Version 1)
Quarter: 2015Q3

REPORT INFORMATION
  Report Type: Spontaneous
  Country: IR (occurrence: IR)
  Receive Date: 20150714
  Receipt Date: 20150714
  Transmission Date: 20151125
  Serious: Yes (Death, Life-Threatening)
  Sender: FDA-Public Use
  Company Number: IR-FRESENIUS KABI-FK201503250

PATIENT
  Age: 23 Year
  Sex: Female
  Weight: 65 kg

DRUGS (3)
  1. ACETAMINOPHEN. [Suspect]
     Active Substance: ACETAMINOPHEN
     Indication: SUICIDE ATTEMPT
     Route: 065
  2. ACETYLCYSTEINE (MANUFACTURER UNKNOWN) (ACETYLCYSTEINE) (ACETYLCYSTEINE) [Suspect]
     Active Substance: ACETYLCYSTEINE
     Indication: INTENTIONAL OVERDOSE
     Route: 065
  3. ACETYLCYSTEINE (MANUFACTURER UNKNOWN) (ACETYLCYSTEINE) (ACETYLCYSTEINE) [Suspect]
     Active Substance: ACETYLCYSTEINE
     Route: 065

REACTIONS (4)
  - Accidental overdose [Not Recovered/Not Resolved]
  - Overdose [Fatal]
  - Thrombotic thrombocytopenic purpura [Not Recovered/Not Resolved]
  - Haemolytic uraemic syndrome [Fatal]
